FAERS Safety Report 6603506-X (Version None)
Quarter: 2010Q1

REPORT INFORMATION
  Report Type: 
  Country: None (occurrence: None)
  Receive Date: 20100226
  Receipt Date: 20090806
  Transmission Date: 20100710
  Serious: No
  Sender: FDA-Public Use
  Company Number: A0800945A

PATIENT
  Age: 51 Year
  Sex: Female

DRUGS (12)
  1. VALTREX [Suspect]
     Indication: GENITAL HERPES
     Dosage: 500MG PER DAY
     Route: 048
     Dates: start: 20060101
  2. ULTRAM [Concomitant]
  3. FLEXERIL [Concomitant]
  4. METOPROLOL TARTRATE [Concomitant]
  5. NIFEDIPINE [Concomitant]
  6. PROTONIX [Concomitant]
  7. DICLOFENAC [Concomitant]
  8. RED YEAST RICE [Concomitant]
  9. ST. JOHN'S WORT [Concomitant]
  10. STOOL SOFTENER [Concomitant]
  11. LUNESTA [Concomitant]
  12. ANTIDIARRHEAL [Concomitant]

REACTIONS (4)
  - CONTUSION [None]
  - INCREASED TENDENCY TO BRUISE [None]
  - INFLUENZA [None]
  - MALAISE [None]
